FAERS Safety Report 18233299 (Version 1)
Quarter: 2020Q3

REPORT INFORMATION
  Report Type: Spontaneous
  Country: DK (occurrence: DK)
  Receive Date: 20200904
  Receipt Date: 20200904
  Transmission Date: 20201103
  Serious: Yes (Other)
  Sender: FDA-Public Use
  Company Number: DK-GLAXOSMITHKLINE-DK2020174142

PATIENT
  Age: 54 Year
  Sex: Female

DRUGS (6)
  1. NITROFURANTOIN. [Concomitant]
     Active Substance: NITROFURANTOIN
     Indication: URINARY TRACT INFECTION
     Dosage: UNK(STRENGTH: UNKNOWNDOSEAGE: UNKNOWN)
     Route: 048
     Dates: end: 201609
  2. ZOLOFT [Concomitant]
     Active Substance: SERTRALINE HYDROCHLORIDE
     Indication: DEPRESSION
     Dosage: 100 MG, QD (STRENGTH: UNKNOWN)
     Route: 048
     Dates: start: 2012
  3. LAMOTRIGINE. [Suspect]
     Active Substance: LAMOTRIGINE
     Dosage: 100 MG, QD (STRENGTH: 100MG)
     Route: 048
     Dates: start: 20161201, end: 20190320
  4. LAMOTRIGINE. [Suspect]
     Active Substance: LAMOTRIGINE
     Indication: TRIGEMINAL NEURALGIA
     Dosage: 200 MG, QD (STRENGTH:200MG)
     Route: 048
     Dates: start: 20120704, end: 20161123
  5. LAMOTRIGINE. [Suspect]
     Active Substance: LAMOTRIGINE
     Dosage: 200 MG, QD (STRENGTH:200MG)
     Route: 048
     Dates: start: 20161201, end: 20190320
  6. LAMOTRIGINE. [Suspect]
     Active Substance: LAMOTRIGINE
     Indication: TRIGEMINAL NEURALGIA
     Dosage: 100 MG, QD (STRENGTH: 100MG)
     Route: 048
     Dates: start: 20120704, end: 20161123

REACTIONS (1)
  - Organising pneumonia [Recovered/Resolved]

NARRATIVE: CASE EVENT DATE: 201609
